FAERS Safety Report 7879078-9 (Version None)
Quarter: 2011Q4

REPORT INFORMATION
  Report Type: 
  Country: None (occurrence: None)
  Receive Date: 20111101
  Receipt Date: 20111027
  Transmission Date: 20120403
  Serious: Yes (Other)
  Sender: FDA-Public Use
  Company Number: PHHY2011JP95670

PATIENT
  Sex: Female

DRUGS (3)
  1. AMLODIPINE [Concomitant]
     Dosage: 10 MG, UNK
     Route: 048
  2. DIOVAN [Suspect]
     Indication: HYPERTENSION
     Dosage: 80 MG, DAILY
     Route: 048
     Dates: start: 20110101, end: 20110101
  3. DIOVAN [Suspect]
     Dosage: 120 MG, DAILY (80 MG DAILY AND ADDITIONAL 40 MG IN THE EVENING)
     Route: 048
     Dates: start: 20110101, end: 20110101

REACTIONS (3)
  - ABDOMINAL DISCOMFORT [None]
  - BLOOD PRESSURE FLUCTUATION [None]
  - NAUSEA [None]
